FAERS Safety Report 10060425 (Version 1)
Quarter: 2014Q2

REPORT INFORMATION
  Report Type: Spontaneous
  Country: NL (occurrence: NL)
  Receive Date: 20140404
  Receipt Date: 20140404
  Transmission Date: 20141212
  Serious: Yes (Hospitalization)
  Sender: FDA-Public Use
  Company Number: NL-AMGEN-NLDSP2014023033

PATIENT
  Age: 91 Year
  Sex: Male

DRUGS (1)
  1. ARANESP [Suspect]
     Indication: PRODUCT USED FOR UNKNOWN INDICATION
     Dosage: 60 MUG, Q2WK
     Route: 058
     Dates: start: 20090925

REACTIONS (5)
  - Cardiac disorder [Unknown]
  - Hypotension [Unknown]
  - Pyrexia [Unknown]
  - Malaise [Unknown]
  - Fatigue [Unknown]
